FAERS Safety Report 4648536-2 (Version None)
Quarter: 2005Q2

REPORT INFORMATION
  Report Type: 
  Country: None (occurrence: None)
  Receive Date: 20050427
  Receipt Date: 20050414
  Transmission Date: 20051028
  Serious: Yes (Hospitalization)
  Sender: FDA-Public Use
  Company Number: 2005060987

PATIENT
  Sex: Female

DRUGS (5)
  1. NEURONTIN [Suspect]
     Indication: NEUROPATHIC PAIN
     Dosage: ORAL
     Route: 048
  2. VALPROATE SODIUM [Suspect]
     Indication: ILL-DEFINED DISORDER
  3. SERTRALINE HCL [Concomitant]
  4. PANADEINE CO (CODINE PHOSPHATE, PARACETAMOL) [Concomitant]
  5. TRAMADOL HCL [Concomitant]

REACTIONS (4)
  - ALOPECIA [None]
  - DYSPHEMIA [None]
  - SOMATOFORM DISORDER [None]
  - TREMOR [None]
